FAERS Safety Report 14122824 (Version 1)
Quarter: 2017Q4

REPORT INFORMATION
  Report Type: Report from Study
  Country: US (occurrence: US)
  Receive Date: 20171025
  Receipt Date: 20171025
  Transmission Date: 20180321
  Serious: No
  Sender: FDA-Public Use
  Company Number: US-ROCHE-2013106

PATIENT
  Sex: Female
  Weight: 47.67 kg

DRUGS (4)
  1. OCREVUS [Suspect]
     Active Substance: OCRELIZUMAB
     Indication: MULTIPLE SCLEROSIS
     Dosage: SINGLE VIAL USE?SECOND HALF INFUSION INTERRUPTED DUE TO URINARY TRACT INFECTION
     Route: 042
     Dates: start: 20171006
  2. CHLORTHALIDONE. [Concomitant]
     Active Substance: CHLORTHALIDONE
     Indication: HYPERTENSION
     Dosage: ONGOING UNKNOWN
     Route: 065
     Dates: start: 2017
  3. TIZANIDINE. [Concomitant]
     Active Substance: TIZANIDINE
     Indication: MUSCLE SPASMS
     Dosage: ONGOING YES
     Route: 065
     Dates: start: 2017
  4. AMLODIPINE [Concomitant]
     Active Substance: AMLODIPINE BESYLATE
     Indication: HYPERTENSION
     Route: 065
     Dates: start: 2016

REACTIONS (1)
  - Urinary tract infection [Not Recovered/Not Resolved]
